FAERS Safety Report 7368463-X (Version None)
Quarter: 2011Q1

REPORT INFORMATION
  Report Type: 
  Country: None (occurrence: None)
  Receive Date: 20110323
  Receipt Date: 20110321
  Transmission Date: 20110831
  Serious: Yes (Other)
  Sender: FDA-Public Use
  Company Number: IT-PFIZER INC-2011061442

PATIENT
  Sex: Male

DRUGS (1)
  1. MEDROL [Suspect]
     Indication: EAR INFECTION
     Dosage: 16 MG, 2X/DAY X 5 DAYS
     Route: 048

REACTIONS (3)
  - URINARY RETENTION [None]
  - PALPITATIONS [None]
  - INCREASED APPETITE [None]
